FAERS Safety Report 4804040-X (Version None)
Quarter: 2005Q4

REPORT INFORMATION
  Report Type: 
  Country: None (occurrence: None)
  Receive Date: 20051018
  Receipt Date: 20051018
  Transmission Date: 20060501
  Serious: Yes (Hospitalization)
  Sender: FDA-Public Use
  Company Number: None

PATIENT
  Age: 62 Year
  Sex: Male

DRUGS (1)
  1. FENOFIBRATE [Suspect]
     Indication: HYPERTRIGLYCERIDAEMIA
     Dosage: ORAL;145.0 MILLIGRAM
     Route: 048
     Dates: start: 20030101, end: 20050819

REACTIONS (1)
  - BONE SARCOMA [None]
